FAERS Safety Report 10367676 (Version 1)
Quarter: 2014Q3

REPORT INFORMATION
  Report Type: Spontaneous
  Country: US (occurrence: US)
  Receive Date: 20140807
  Receipt Date: 20140807
  Transmission Date: 20150326
  Serious: No
  Sender: FDA-Public Use
  Company Number: US-TARO-2014P1003110

PATIENT
  Age: 75 Year
  Sex: Female
  Weight: 52.16 kg

DRUGS (5)
  1. LEVOTHYROXINE [Concomitant]
     Active Substance: LEVOTHYROXINE
  2. ATENOLOL. [Concomitant]
     Active Substance: ATENOLOL
  3. ASPIRIN. [Concomitant]
     Active Substance: ASPIRIN
  4. FLUOCINONIDE OINTMENT USP 0.05% [Suspect]
     Active Substance: FLUOCINONIDE
     Dosage: BID
     Route: 061
     Dates: start: 20140208, end: 201402
  5. LEVOTHYROXINE [Concomitant]
     Active Substance: LEVOTHYROXINE

REACTIONS (2)
  - Off label use [Unknown]
  - Peripheral swelling [Recovering/Resolving]

NARRATIVE: CASE EVENT DATE: 20140208
